FAERS Safety Report 8317733 (Version 4)
Quarter: 2013Q4

REPORT INFORMATION
  Report Type: Report from Study
  Country: FR (occurrence: FR)
  Receive Date: 20120102
  Receipt Date: 20131108
  Transmission Date: 20140711
  Serious: Yes (Hospitalization)
  Sender: FDA-Public Use
  Company Number: PHHY2011FR113498

PATIENT
  Age: 66 Year
  Sex: Female
  Weight: 55 kg

DRUGS (4)
  1. ACLASTA/ZOLEDRONATE [Suspect]
     Indication: OSTEOPOROSIS
     Dosage: UNK
     Route: 042
     Dates: start: 201109
  2. CREON [Concomitant]
     Dates: start: 2011
  3. NEXIUM [Concomitant]
     Dates: start: 2011
  4. SPASFON [Concomitant]
     Dates: start: 2011

REACTIONS (1)
  - Adenocarcinoma pancreas [Recovered/Resolved]
